FAERS Safety Report 4455840-X (Version None)
Quarter: 2004Q3

REPORT INFORMATION
  Report Type: 
  Country: None (occurrence: None)
  Receive Date: 20040922
  Receipt Date: 20040711
  Transmission Date: 20050211
  Serious: Yes (Other)
  Sender: FDA-Public Use
  Company Number: US-ROCHE-374205

PATIENT
  Age: 59 Year
  Sex: Male

DRUGS (3)
  1. PEGASYS [Suspect]
     Indication: DRUG USE FOR UNKNOWN INDICATION
     Dosage: ROUTE:  INJECTABLE.
     Route: 050
     Dates: start: 20040615
  2. COPEGUS [Suspect]
     Indication: DRUG USE FOR UNKNOWN INDICATION
     Dosage: 3 MORE TABLETS WERE TAKEN AFTER DINNER.
     Route: 048
     Dates: start: 20040615
  3. ANAPROX [Suspect]
     Route: 065

REACTIONS (5)
  - DEPRESSION [None]
  - DISTURBANCE IN ATTENTION [None]
  - NO ADVERSE EFFECT [None]
  - OVERDOSE [None]
  - TINNITUS [None]
